FAERS Safety Report 24461020 (Version 1)
Quarter: 2024Q4

REPORT INFORMATION
  Report Type: Report from Study
  Country: JP (occurrence: JP)
  Receive Date: 20241018
  Receipt Date: 20241018
  Transmission Date: 20250114
  Serious: No
  Sender: ROCHE
  Company Number: JP-ROCHE-3538525

PATIENT
  Age: 2 Year
  Sex: Male
  Weight: 12.0 kg

DRUGS (2)
  1. RITUXAN [Suspect]
     Active Substance: RITUXIMAB
     Indication: Nephrotic syndrome
     Dosage: SUBSEQUENT DOSE RECEIVED ON FEB/2022, FEB/2023
     Route: 041
     Dates: start: 202112, end: 202112
  2. CYCLOSPORINE [Concomitant]
     Active Substance: CYCLOSPORINE
     Route: 048

REACTIONS (2)
  - Hypogammaglobulinaemia [Recovered/Resolved]
  - Off label use [Unknown]

NARRATIVE: CASE EVENT DATE: 20211201
